FAERS Safety Report 7446416-0 (Version None)
Quarter: 2011Q2

REPORT INFORMATION
  Report Type: 
  Country: None (occurrence: None)
  Receive Date: 20110429
  Receipt Date: 20100916
  Transmission Date: 20111010
  Serious: No
  Sender: FDA-Public Use
  Company Number: US-ASTRAZENECA-2010SE43636

PATIENT
  Sex: Male
  Weight: 77.1 kg

DRUGS (8)
  1. VITAMIN D [Concomitant]
  2. CENTRUM [Concomitant]
  3. NEXIUM [Suspect]
     Indication: HIATUS HERNIA
     Route: 048
     Dates: start: 20030101
  4. DIOVAN [Concomitant]
     Indication: BLOOD PRESSURE
  5. DARVON [Concomitant]
  6. NEXIUM [Suspect]
     Indication: GASTROOESOPHAGEAL REFLUX DISEASE
     Route: 048
     Dates: start: 20030101
  7. NORCO [Concomitant]
     Indication: PAIN
  8. FISH OIL [Concomitant]

REACTIONS (2)
  - BONE PAIN [None]
  - MUSCULOSKELETAL DISCOMFORT [None]
